FAERS Safety Report 8008976-0 (Version None)
Quarter: 2011Q4

REPORT INFORMATION
  Report Type: 
  Country: None (occurrence: None)
  Receive Date: 20111227
  Receipt Date: 20111221
  Transmission Date: 20120403
  Serious: No
  Sender: FDA-Public Use
  Company Number: US-PFIZER INC-2011311622

PATIENT
  Sex: Male

DRUGS (1)
  1. TYGACIL [Suspect]
     Indication: ACINETOBACTER INFECTION
     Dosage: 50 MG, UNK

REACTIONS (1)
  - DRUG INEFFECTIVE [None]
